FAERS Safety Report 4316434-X (Version None)
Quarter: 2004Q1

REPORT INFORMATION
  Report Type: 
  Country: None (occurrence: None)
  Receive Date: 20040311
  Receipt Date: 20040226
  Transmission Date: 20041129
  Serious: Yes (Hospitalization)
  Sender: FDA-Public Use
  Company Number: 2004011151

PATIENT
  Age: 45 Year
  Sex: Male

DRUGS (1)
  1. NORVASC [Suspect]
     Indication: HYPERTENSION
     Dosage: 2.5 MG DAILY ORAL
     Route: 048
     Dates: start: 20031201

REACTIONS (10)
  - ANAPHYLACTIC REACTION [None]
  - BLOOD PRESSURE DECREASED [None]
  - BLOOD PRESSURE INCREASED [None]
  - CHEST PAIN [None]
  - FALL [None]
  - FOOD ALLERGY [None]
  - SOMNOLENCE [None]
  - URTICARIA [None]
  - VASOCONSTRICTION [None]
  - VOMITING [None]
